FAERS Safety Report 8689511 (Version 3)
Quarter: 2012Q4

REPORT INFORMATION
  Report Type: 
  Country: US (occurrence: US)
  Receive Date: 20120727
  Receipt Date: 20121127
  Transmission Date: 20130627
  Serious: Yes (Other)
  Sender: FDA-Public Use
  Company Number: US-ASTRAZENECA-2011SE78580

PATIENT
  Age: 61 Year
  Sex: Female
  Weight: 63.5 kg

DRUGS (7)
  1. SEROQUEL XR [Suspect]
     Indication: DEPRESSION
     Route: 048
     Dates: start: 1998
  2. SEROQUEL XR [Suspect]
     Indication: BIPOLAR DISORDER
     Route: 048
     Dates: start: 1998
  3. SEROQUEL XR [Suspect]
     Indication: DEPRESSION
     Route: 048
  4. SEROQUEL XR [Suspect]
     Indication: BIPOLAR DISORDER
     Route: 048
  5. PAXIL [Concomitant]
  6. TRAZADONE [Concomitant]
  7. AMBIEN [Concomitant]

REACTIONS (15)
  - Suicidal ideation [Unknown]
  - Intentional drug misuse [Unknown]
  - Malaise [Unknown]
  - Obsessive thoughts [Unknown]
  - Rash [Not Recovered/Not Resolved]
  - Pruritus [Not Recovered/Not Resolved]
  - Weight decreased [Unknown]
  - Decreased appetite [Unknown]
  - Osteoarthritis [Unknown]
  - Arthralgia [Unknown]
  - Abnormal behaviour [Not Recovered/Not Resolved]
  - Amnesia [Not Recovered/Not Resolved]
  - Tremor [Unknown]
  - Somnolence [Unknown]
  - Drug dose omission [Unknown]
